FAERS Safety Report 19957293 (Version 1)
Quarter: 2021Q4

REPORT INFORMATION
  Report Type: Spontaneous
  Country: JP (occurrence: JP)
  Receive Date: 20211014
  Receipt Date: 20211014
  Transmission Date: 20220303
  Serious: Yes (Other)
  Sender: FDA-Public Use
  Company Number: 2021A767227

PATIENT
  Age: 67 Year
  Sex: Female

DRUGS (5)
  1. DAPAGLIFLOZIN [Suspect]
     Active Substance: DAPAGLIFLOZIN
     Indication: Diabetes mellitus
     Dosage: DOSE UNKNOWN
     Route: 048
  2. PRAVASTATIN [Concomitant]
     Active Substance: PRAVASTATIN
     Dosage: DOSE UNKNOWN
     Route: 065
  3. SAXAGLIPTIN HYDRATE [Concomitant]
     Dosage: DOSE UNKNOWN
     Route: 065
  4. METFORMIN HYDROCHLORIDE [Concomitant]
     Active Substance: METFORMIN HYDROCHLORIDE
     Dosage: DOSE UNKNOWN
     Route: 065
  5. GLIMEPIRIDE [Concomitant]
     Active Substance: GLIMEPIRIDE
     Dosage: 1.0MG UNKNOWN

REACTIONS (3)
  - Glycosylated haemoglobin increased [Recovering/Resolving]
  - Diabetes mellitus inadequate control [Recovering/Resolving]
  - Blood glucose increased [Recovering/Resolving]

NARRATIVE: CASE EVENT DATE: 20210301
